FAERS Safety Report 8448356-7 (Version None)
Quarter: 2012Q2

REPORT INFORMATION
  Report Type: 
  Country: None (occurrence: None)
  Receive Date: 20120619
  Receipt Date: 20120612
  Transmission Date: 20120825
  Serious: No
  Sender: FDA-Public Use
  Company Number: US-PFIZER INC-2012117635

PATIENT
  Sex: Female
  Weight: 82.54 kg

DRUGS (6)
  1. CARBAMAZEPINE [Interacting]
     Indication: BURNING SENSATION
  2. LIPITOR [Suspect]
     Indication: BLOOD CHOLESTEROL INCREASED
     Dosage: 80 MG, DAILY
     Route: 048
     Dates: start: 20120424
  3. CARBAMAZEPINE [Interacting]
     Indication: NEUROPATHY PERIPHERAL
     Dosage: 200 MG, 4X/DAY
  4. HYDRALAZINE [Concomitant]
     Indication: HYPERTENSION
     Dosage: 50 MG, 4X/DAY
  5. PRAVASTATIN [Concomitant]
     Dosage: UNK
  6. NIFEDIPINE [Concomitant]
     Indication: HYPERTENSION
     Dosage: 120 MG (30MG ALONG WITH 90MG TOGETHER), DAILY

REACTIONS (2)
  - BURNING SENSATION [None]
  - INHIBITORY DRUG INTERACTION [None]
